FAERS Safety Report 6384458-7 (Version None)
Quarter: 2009Q4

REPORT INFORMATION
  Report Type: 
  Country: None (occurrence: None)
  Receive Date: 20091001
  Receipt Date: 20090929
  Transmission Date: 20100525
  Serious: No
  Sender: FDA-Public Use
  Company Number: US-ROXANE LABORATORIES, INC.-2009-RO-00835RO

PATIENT
  Sex: Male
  Weight: 75 kg

DRUGS (6)
  1. LITHIUM CARBONATE [Suspect]
     Indication: BIPOLAR DISORDER
     Route: 065
  2. LITHIUM CARBONATE [Suspect]
     Route: 065
     Dates: start: 20060101, end: 20060101
  3. PAXIL [Concomitant]
     Indication: BIPOLAR DISORDER
  4. LEXAPRO [Concomitant]
     Indication: BIPOLAR DISORDER
  5. PROZAC [Concomitant]
     Indication: BIPOLAR DISORDER
  6. CELEXA [Concomitant]
     Indication: BIPOLAR DISORDER

REACTIONS (2)
  - RENAL DISORDER [None]
  - RENAL IMPAIRMENT [None]
